FAERS Safety Report 19389122 (Version 1)
Quarter: 2021Q2

REPORT INFORMATION
  Report Type: Spontaneous
  Country: US (occurrence: US)
  Receive Date: 20210608
  Receipt Date: 20210608
  Transmission Date: 20210717
  Serious: No
  Sender: FDA-Public Use
  Company Number: US-SAREPTA THERAPEUTICS INC.-SRP2021-001437

PATIENT
  Age: 19 Year
  Sex: Male
  Weight: 36.3 kg

DRUGS (1)
  1. AMONDYS 45 [Suspect]
     Active Substance: CASIMERSEN
     Indication: DUCHENNE MUSCULAR DYSTROPHY
     Dosage: 1000 MILLIGRAM, WEEKLY
     Route: 042
     Dates: start: 20210507

REACTIONS (2)
  - Inappropriate schedule of product administration [Recovered/Resolved]
  - Product label confusion [Recovered/Resolved]

NARRATIVE: CASE EVENT DATE: 20210507
